FAERS Safety Report 23819265 (Version 1)
Quarter: 2024Q2

REPORT INFORMATION
  Report Type: Spontaneous
  Country: IT (occurrence: IT)
  Receive Date: 20240506
  Receipt Date: 20240506
  Transmission Date: 20240715
  Serious: Yes (Hospitalization, Other)
  Sender: FDA-Public Use
  Company Number: None

PATIENT
  Age: 20 Year
  Sex: Male

DRUGS (2)
  1. KEPPRA [Suspect]
     Active Substance: LEVETIRACETAM
     Indication: Suicide attempt
     Dosage: REPORTED INGESTION OF 20 TABLETS, DOSE NOT SPECIFIED IN MORE DETAIL.
     Route: 048
     Dates: start: 20240412, end: 20240412
  2. KEPPRA [Suspect]
     Active Substance: LEVETIRACETAM
     Indication: Intentional overdose

REACTIONS (4)
  - Confusional state [Not Recovered/Not Resolved]
  - Suicide attempt [Not Recovered/Not Resolved]
  - Intentional overdose [Unknown]
  - Drug abuse [Unknown]

NARRATIVE: CASE EVENT DATE: 20240412
